FAERS Safety Report 21628558 (Version 1)
Quarter: 2022Q4

REPORT INFORMATION
  Report Type: Spontaneous
  Country: US (occurrence: None)
  Receive Date: 20221121
  Receipt Date: 20221121
  Transmission Date: 20230113
  Serious: Yes (Disabling)
  Sender: FDA-Public Use
  Company Number: None

PATIENT
  Age: 73 Year
  Sex: Male
  Weight: 75.6 kg

DRUGS (1)
  1. PANTOPRAZOLE SODIUM [Suspect]
     Active Substance: PANTOPRAZOLE SODIUM

REACTIONS (5)
  - Gastric polyps [None]
  - Manufacturing issue [None]
  - Product quality issue [None]
  - Dysgeusia [None]
  - Abdominal pain upper [None]

NARRATIVE: CASE EVENT DATE: 20220407
